FAERS Safety Report 4548740-8 (Version None)
Quarter: 2004Q4

REPORT INFORMATION
  Report Type: 
  Country: None (occurrence: None)
  Receive Date: 20041220
  Receipt Date: 20031126
  Transmission Date: 20050328
  Serious: Yes (Hospitalization)
  Sender: FDA-Public Use
  Company Number: USA031153516

PATIENT
  Age: 73 Year
  Sex: Male

DRUGS (2)
  1. HUMALOG [Suspect]
     Indication: DIABETES MELLITUS
     Dates: end: 20020501
  2. HUMULIN 70/30 [Suspect]
     Indication: DIABETES MELLITUS
     Dosage: 125 U/DAY
     Dates: start: 19990301

REACTIONS (4)
  - ANGIOPATHY [None]
  - LOCALISED INFECTION [None]
  - SKIN DISCOLOURATION [None]
  - VISUAL ACUITY REDUCED [None]
